FAERS Safety Report 6047082-1 (Version None)
Quarter: 2009Q1

REPORT INFORMATION
  Report Type: 
  Country: None (occurrence: None)
  Receive Date: 20090122
  Receipt Date: 20090112
  Transmission Date: 20090719
  Serious: Yes (Other)
  Sender: FDA-Public Use
  Company Number: US-JNJCH-2009000946

PATIENT
  Age: 46 Year
  Sex: Female
  Weight: 77.1 kg

DRUGS (1)
  1. BENADRYL [Suspect]
     Indication: INFLUENZA LIKE ILLNESS
     Dosage: TEXT:TWO TABLETS ONCE
     Route: 048
     Dates: start: 20090101, end: 20090101

REACTIONS (3)
  - HYPERSENSITIVITY [None]
  - RASH [None]
  - VASCULITIS [None]
